FAERS Safety Report 19486230 (Version 1)
Quarter: 2021Q3

REPORT INFORMATION
  Report Type: Spontaneous
  Country: US (occurrence: US)
  Receive Date: 20210702
  Receipt Date: 20210702
  Transmission Date: 20211014
  Serious: No
  Sender: FDA-Public Use
  Company Number: US-SA-2021SA217763

PATIENT
  Age: 63 Year
  Sex: Male

DRUGS (7)
  1. TRELEGY ELLIPTA [Concomitant]
     Active Substance: FLUTICASONE FUROATE\UMECLIDINIUM BROMIDE\VILANTEROL TRIFENATATE
     Dosage: TRELEGY ELLIPTA 100?62.5 BLST W/DEV
  2. SINGULAIR [Concomitant]
     Active Substance: MONTELUKAST SODIUM
  3. PREDNISONE. [Concomitant]
     Active Substance: PREDNISONE
  4. VENTOLIN [Concomitant]
     Active Substance: ALBUTEROL SULFATE
     Dosage: VENTOLIN HFA 90 MCG HFA AER AD
  5. MUCINEX [Concomitant]
     Active Substance: GUAIFENESIN
  6. ALBUTEROL;IPRATROPIUM [Concomitant]
     Active Substance: ALBUTEROL\IPRATROPIUM
  7. DUPIXENT [Suspect]
     Active Substance: DUPILUMAB
     Indication: ASTHMA
     Dosage: 300 MG, QOW
     Route: 058
     Dates: end: 202106

REACTIONS (3)
  - Dyspnoea [Unknown]
  - Product use issue [Unknown]
  - Product dose omission issue [Unknown]

NARRATIVE: CASE EVENT DATE: 20210625
